FAERS Safety Report 10399243 (Version 1)
Quarter: 2014Q3

REPORT INFORMATION
  Report Type: Spontaneous
  Country: IT (occurrence: None)
  Receive Date: 20140819
  Receipt Date: 20140819
  Transmission Date: 20150326
  Serious: Yes (Hospitalization)
  Sender: FDA-Public Use
  Company Number: AUR-APL-2014-08838

PATIENT
  Age: 77 Year
  Sex: Female

DRUGS (8)
  1. LENDORMIN (BROTIZOLAM) [Concomitant]
  2. LOBIVON (NEBIVOLOL HYDROCHLORIDE) [Concomitant]
  3. CARDIRENE (ACETYLSALICYLATE LYSINE) [Concomitant]
  4. CITALOPRAM [Suspect]
     Active Substance: CITALOPRAM HYDROBROMIDE
     Indication: PRODUCT USED FOR UNKNOWN INDICATION
     Dosage: 10 MG, TOTAL, ORAL
     Route: 048
     Dates: start: 20140403, end: 20140403
  5. TAVOR [Concomitant]
     Active Substance: LORAZEPAM
  6. CLENIL (BECLOMETASONE DIPROPIONATE) [Concomitant]
     Active Substance: BECLOMETHASONE DIPROPIONATE
  7. SIMVASTATIN (SIMVASTATIN) [Concomitant]
     Active Substance: SIMVASTATIN
  8. METFORMIN HYDROCHLORIDE (METFORMIN HYDROCHLORIDE) [Concomitant]
     Active Substance: METFORMIN HYDROCHLORIDE

REACTIONS (3)
  - Dysarthria [None]
  - Agitation [None]
  - Disorientation [None]

NARRATIVE: CASE EVENT DATE: 20140403
